FAERS Safety Report 10331130 (Version 2)
Quarter: 2014Q3

REPORT INFORMATION
  Report Type: Spontaneous
  Country: JP (occurrence: JP)
  Receive Date: 20140722
  Receipt Date: 20140722
  Transmission Date: 20150326
  Serious: Yes (Hospitalization)
  Sender: FDA-Public Use
  Company Number: JP-JNJFOC-20140600965

PATIENT
  Age: 94 Year
  Sex: Female

DRUGS (9)
  1. BENET [Concomitant]
     Active Substance: RISEDRONIC ACID
     Route: 048
  2. SOLON [Concomitant]
     Active Substance: SOFALCONE
     Route: 048
  3. ALFAROL [Concomitant]
     Active Substance: ALFACALCIDOL
     Route: 048
  4. LOXONIN [Concomitant]
     Active Substance: LOXOPROFEN SODIUM
     Route: 065
  5. PARIET [Concomitant]
     Active Substance: RABEPRAZOLE SODIUM
     Route: 048
  6. REMINYL [Suspect]
     Active Substance: GALANTAMINE
     Indication: DEMENTIA ALZHEIMER^S TYPE
     Route: 048
     Dates: end: 20140527
  7. ALANTA SF [Concomitant]
     Route: 048
  8. ALANTA SF [Concomitant]
     Route: 048
  9. TECHNIS [Concomitant]
     Route: 048

REACTIONS (3)
  - Tachycardia [Unknown]
  - Fracture [Unknown]
  - Overdose [Unknown]

NARRATIVE: CASE EVENT DATE: 2014
